FAERS Safety Report 6336872-3 (Version None)
Quarter: 2009Q3

REPORT INFORMATION
  Report Type: 
  Country: None (occurrence: None)
  Receive Date: 20090901
  Receipt Date: 20090827
  Transmission Date: 20100115
  Serious: Yes (Life-Threatening)
  Sender: FDA-Public Use
  Company Number: JP-BAXTER-2009BH012887

PATIENT
  Age: 66 Year
  Sex: Female

DRUGS (7)
  1. ENDOXAN BAXTER [Suspect]
     Indication: LYMPHOMA
     Route: 041
     Dates: start: 20071105, end: 20080311
  2. ENDOXAN BAXTER [Suspect]
     Route: 041
     Dates: start: 20071105, end: 20080311
  3. PREDONINE [Suspect]
     Indication: LYMPHOMA
     Route: 041
     Dates: start: 20071105, end: 20071105
  4. PREDONINE [Suspect]
     Route: 048
     Dates: start: 20071106, end: 20080315
  5. THERARUBICIN [Suspect]
     Indication: LYMPHOMA
     Route: 041
     Dates: start: 20071105, end: 20080311
  6. VINCRISTINE SULFATE GENERIC [Suspect]
     Indication: LYMPHOMA
     Route: 042
     Dates: start: 20071105, end: 20080311
  7. RITUXIMAB [Suspect]
     Indication: LYMPHOMA
     Route: 041
     Dates: start: 20071126, end: 20080310

REACTIONS (1)
  - SMALL INTESTINAL PERFORATION [None]
